FAERS Safety Report 9404901 (Version 1)
Quarter: 2013Q3

REPORT INFORMATION
  Report Type: Spontaneous
  Country: US (occurrence: US)
  Receive Date: 20130717
  Receipt Date: 20130717
  Transmission Date: 20140515
  Serious: Yes (Death)
  Sender: FDA-Public Use
  Company Number: US-BRISTOL-MYERS SQUIBB COMPANY-18931030

PATIENT
  Age: 60 Year
  Sex: Male
  Weight: 78.88 kg

DRUGS (2)
  1. YERVOY [Suspect]
     Indication: METASTATIC MALIGNANT MELANOMA
     Dosage: 200MG/40ML
     Route: 041
     Dates: start: 20120106, end: 20120127
  2. DACARBAZINE [Concomitant]

REACTIONS (6)
  - Malignant neoplasm progression [Fatal]
  - Respiratory failure [Fatal]
  - Hepatotoxicity [Fatal]
  - Hypotension [Fatal]
  - Cellulitis [Fatal]
  - Pain [Fatal]
